FAERS Safety Report 9175570 (Version 1)
Quarter: 2013Q1

REPORT INFORMATION
  Report Type: Spontaneous
  Country: US (occurrence: US)
  Receive Date: 20130320
  Receipt Date: 20130320
  Transmission Date: 20140127
  Serious: No
  Sender: FDA-Public Use
  Company Number: US-BAYER-2013-030072

PATIENT
  Age: 53 Year
  Sex: Female

DRUGS (2)
  1. BETASERON [Suspect]
     Dosage: UNK
     Dates: start: 1999, end: 2012
  2. DEVICE [Suspect]
     Indication: DEVICE THERAPY
     Dosage: UNK

REACTIONS (3)
  - Injection site pain [Unknown]
  - Injection site haematoma [Unknown]
  - Injection site reaction [Unknown]
